FAERS Safety Report 5154881-7 (Version None)
Quarter: 2006Q4

REPORT INFORMATION
  Report Type: 
  Country: None (occurrence: None)
  Receive Date: 20061121
  Receipt Date: 20061108
  Transmission Date: 20070319
  Serious: Yes (Disabling)
  Sender: FDA-Public Use
  Company Number: GBWYE468508NOV06

PATIENT
  Sex: Female
  Weight: 48 kg

DRUGS (3)
  1. ENBREL [Suspect]
     Indication: DRUG USE FOR UNKNOWN INDICATION
     Dates: start: 20051001
  2. ENBREL [Suspect]
     Dates: start: 20060101
  3. PHENYTOIN SODIUM CAP [Concomitant]
     Indication: EPILEPSY
     Route: 048
     Dates: start: 19980420

REACTIONS (2)
  - BLOOD ALKALINE PHOSPHATASE INCREASED [None]
  - WEIGHT DECREASED [None]
